FAERS Safety Report 8402460-8 (Version None)
Quarter: 2012Q2

REPORT INFORMATION
  Report Type: 
  Country: None (occurrence: None)
  Receive Date: 20120323
  Receipt Date: 20110429
  Transmission Date: 20120825
  Serious: Yes (Hospitalization)
  Sender: FDA-Public Use
  Company Number: 163-21880-11050101

PATIENT
  Age: 75 Year
  Sex: Male

DRUGS (5)
  1. HYDROCHOROTHIAZIDE (HYDROCHOROTHIAZIDE) [Concomitant]
  2. COUMADIN [Concomitant]
  3. PACERONE (AMIODARONE HYDROCHORIDE) [Concomitant]
  4. REVLIMID [Suspect]
     Indication: MULTIPLE MYELOMA
     Dosage: 10 MG, 1 IN 1 D, PO
     Route: 048
     Dates: start: 20110318
  5. LASIX [Concomitant]

REACTIONS (1)
  - HAEMATURIA [None]
